FAERS Safety Report 24138318 (Version 1)
Quarter: 2024Q3

REPORT INFORMATION
  Report Type: Spontaneous
  Country: IN (occurrence: IN)
  Receive Date: 20240725
  Receipt Date: 20240725
  Transmission Date: 20241016
  Serious: Yes (Other)
  Sender: ABBVIE
  Company Number: IN-ABBOTT-2024A-1384614

PATIENT
  Sex: Female

DRUGS (1)
  1. LEVOTHYROXINE [Suspect]
     Active Substance: LEVOTHYROXINE\LEVOTHYROXINE SODIUM
     Indication: Product used for unknown indication
     Dosage: CONSUMING MORE THAN 10 YEARS
     Route: 048

REACTIONS (7)
  - Asphyxia [Unknown]
  - Heart rate increased [Unknown]
  - Hyperhidrosis [Unknown]
  - Product quality issue [Unknown]
  - Drug ineffective [Unknown]
  - Headache [Unknown]
  - Nausea [Unknown]

NARRATIVE: CASE EVENT DATE: 20240701
